FAERS Safety Report 8621781-7 (Version None)
Quarter: 2012Q3

REPORT INFORMATION
  Report Type: 
  Country: None (occurrence: None)
  Receive Date: 20120822
  Receipt Date: 20120822
  Transmission Date: 20120928
  Serious: No
  Sender: FDA-Public Use
  Company Number: None

PATIENT
  Sex: Male
  Weight: 66.452 kg

DRUGS (7)
  1. NEXIUM [Suspect]
     Indication: GASTRITIS
     Dosage: 40D MG TB
     Dates: start: 20120301, end: 20120501
  2. NEXIUM [Suspect]
     Indication: OESOPHAGITIS
     Dosage: 40D MG TB
     Dates: start: 20120301, end: 20120501
  3. NEXIUM [Suspect]
     Indication: IMPAIRED GASTRIC EMPTYING
     Dosage: 40D MG TB
     Dates: start: 20120301, end: 20120501
  4. PREVACID [Concomitant]
  5. OMEPRAZOLE [Concomitant]
  6. PROTONIX [Concomitant]
  7. PRILOSEC OTC [Concomitant]

REACTIONS (1)
  - PRODUCT SUBSTITUTION ISSUE [None]
